FAERS Safety Report 14840799 (Version 2)
Quarter: 2018Q2

REPORT INFORMATION
  Report Type: Spontaneous
  Country: US (occurrence: US)
  Receive Date: 20180503
  Receipt Date: 20180512
  Transmission Date: 20180711
  Serious: Yes (Hospitalization)
  Sender: FDA-Public Use
  Company Number: US-ROCHE-2116885

PATIENT
  Age: 79 Year
  Sex: Male
  Weight: 92.62 kg

DRUGS (22)
  1. ESBRIET [Suspect]
     Active Substance: PIRFENIDONE
     Indication: IDIOPATHIC PULMONARY FIBROSIS
     Dosage: 3 CAPSULES WITH FOOD
     Route: 048
     Dates: start: 20170412
  2. DOXYCYCLINE HYCLATE. [Concomitant]
     Active Substance: DOXYCYCLINE HYCLATE
     Dosage: PRN
     Route: 048
  3. CHERATUSSIN [Concomitant]
     Active Substance: AMMONIUM CHLORIDE\DEXTROMETHORPHAN\SODIUM CITRATE
     Dosage: 100-10 MG/5ML, QHS AS NEEDED, 6 OUNCE, 30 DAYS
     Route: 048
  4. OXYGEN. [Concomitant]
     Active Substance: OXYGEN
     Dosage: 2LPM QHS WITH AMBULATION
     Route: 045
  5. JANUVIA [Concomitant]
     Active Substance: SITAGLIPTIN PHOSPHATE
     Route: 048
  6. FISH OIL [Concomitant]
     Active Substance: FISH OIL
     Dosage: 1 CAPSULE
     Route: 048
  7. ESBRIET [Suspect]
     Active Substance: PIRFENIDONE
     Indication: HYPOXIA
  8. SOTALOL HCL [Concomitant]
     Active Substance: SOTALOL
     Route: 048
  9. VITAMIN B12 [Concomitant]
     Active Substance: CYANOCOBALAMIN
     Dosage: 1 TABLET
     Route: 048
  10. TRICOR [Concomitant]
     Active Substance: FENOFIBRATE
     Dosage: 1 TABLET
     Route: 048
  11. METFORMIN HYDROCHLORIDE. [Concomitant]
     Active Substance: METFORMIN HYDROCHLORIDE
     Dosage: 2 TABLETS
     Route: 048
  12. XARELTO [Concomitant]
     Active Substance: RIVAROXABAN
     Dosage: 1 TABLET WITH FOOD
     Route: 048
  13. LASIX [Concomitant]
     Active Substance: FUROSEMIDE
     Route: 048
  14. PANTOPRAZOLE SODIUM. [Concomitant]
     Active Substance: PANTOPRAZOLE SODIUM
     Dosage: DELAYED RELEASE TABLET
     Route: 048
  15. GLIMEPIRIDE. [Concomitant]
     Active Substance: GLIMEPIRIDE
     Route: 048
  16. EZETIMIBE. [Concomitant]
     Active Substance: EZETIMIBE
     Route: 048
  17. LIPITOR [Concomitant]
     Active Substance: ATORVASTATIN CALCIUM
     Route: 048
  18. GUAIFENESIN/HYDROCODONE [Concomitant]
     Dosage: 2.5-200 MG
     Route: 048
  19. FLUTICASONE PROPIONATE. [Concomitant]
     Active Substance: FLUTICASONE PROPIONATE
     Dosage: 1 SPRAY IN EACH NOSTRIL
     Route: 045
  20. CARVEDILOL. [Concomitant]
     Active Substance: CARVEDILOL
     Route: 048
  21. LOSARTAN POTASSIUM. [Concomitant]
     Active Substance: LOSARTAN POTASSIUM
     Dosage: HALF TABLET
     Route: 048
  22. PLAVIX [Concomitant]
     Active Substance: CLOPIDOGREL BISULFATE
     Dosage: 1 TABLET
     Route: 048

REACTIONS (4)
  - Pneumonia [Unknown]
  - Dyspnoea [Unknown]
  - Cardiac failure congestive [Unknown]
  - Dizziness [Unknown]

NARRATIVE: CASE EVENT DATE: 20180408
